FAERS Safety Report 21552596 (Version 3)
Quarter: 2024Q2

REPORT INFORMATION
  Report Type: Report from Study
  Country: US (occurrence: US)
  Receive Date: 20221104
  Receipt Date: 20240402
  Transmission Date: 20240716
  Serious: Yes (Other)
  Sender: FDA-Public Use
  Company Number: US-ABBVIE-4186936

PATIENT
  Sex: Female

DRUGS (1)
  1. RINVOQ [Suspect]
     Active Substance: UPADACITINIB
     Indication: Rheumatoid arthritis
     Route: 048
     Dates: end: 2022

REACTIONS (6)
  - Cerebrovascular accident [Recovering/Resolving]
  - Fall [Unknown]
  - Skin laceration [Recovering/Resolving]
  - Head injury [Unknown]
  - Rib fracture [Unknown]
  - Clavicle fracture [Recovering/Resolving]

NARRATIVE: CASE EVENT DATE: 20220101
